FAERS Safety Report 24259005 (Version 1)
Quarter: 2024Q3

REPORT INFORMATION
  Report Type: Spontaneous
  Country: US (occurrence: US)
  Receive Date: 20240828
  Receipt Date: 20240828
  Transmission Date: 20241016
  Serious: Yes (Other)
  Sender: PFIZER
  Company Number: US-PFIZER INC-PV202400110554

PATIENT
  Age: 80 Year
  Sex: Female

DRUGS (3)
  1. TUKYSA [Suspect]
     Active Substance: TUCATINIB
     Dosage: 300 MG
  2. TUKYSA [Suspect]
     Active Substance: TUCATINIB
     Dosage: 150 MG 2 TABLETS TWICE A DAY
  3. XELODA [Suspect]
     Active Substance: CAPECITABINE
     Dosage: UNK

REACTIONS (2)
  - Neuropathy peripheral [Unknown]
  - Blister [Unknown]
